FAERS Safety Report 8402115-X (Version None)
Quarter: 2012Q2

REPORT INFORMATION
  Report Type: 
  Country: None (occurrence: None)
  Receive Date: 20120601
  Receipt Date: 20120529
  Transmission Date: 20120825
  Serious: Yes (Life-Threatening, Hospitalization, Other)
  Sender: FDA-Public Use
  Company Number: PHEH2012US010946

PATIENT
  Sex: Male
  Weight: 111.57 kg

DRUGS (45)
  1. ABILIFY [Concomitant]
     Indication: DEPRESSION
     Dosage: 2 DF, QD
     Route: 048
     Dates: start: 20100104
  2. METHYLPREDNISOLONE [Concomitant]
     Dosage: 4 MG, UNK
     Route: 048
     Dates: start: 20120306
  3. COREG [Concomitant]
     Dosage: 6.25 MG, BID
     Route: 048
  4. SUPER B [Concomitant]
  5. GILENYA [Suspect]
     Indication: RELAPSING-REMITTING MULTIPLE SCLEROSIS
     Dosage: 0.5 MG, QD
     Route: 048
     Dates: start: 20110721, end: 20120104
  6. AZITHROMYCIN [Concomitant]
     Dosage: 2 TABS ON DAY1, THEN 1 TAB A DAY FOR 4 DAYS, QD
     Route: 048
     Dates: start: 20120306
  7. DILAUDID [Concomitant]
     Indication: PAIN
     Dosage: 8 MG, Q4H
     Route: 037
     Dates: start: 20050726
  8. MULTIVITAMIN [Concomitant]
  9. INFLUENZA VACCINE [Concomitant]
  10. BACLOFEN [Concomitant]
     Indication: MUSCLE SPASMS
     Dosage: 1 DF, Q6H
     Route: 048
     Dates: start: 20100325
  11. FLUCONAZOLE [Concomitant]
     Dosage: 150 MG, QD
     Route: 048
     Dates: start: 20100924
  12. ZOFRAN [Concomitant]
     Dosage: 8 MG, UNK
  13. DOSS [Concomitant]
  14. HEPARIN [Concomitant]
  15. AMFETAMINE W/DEXAMFETAMINE [Concomitant]
     Dosage: 2 DF, BID
     Route: 048
  16. GLUCOSAMINE W/CHONDROITIN [Concomitant]
     Dosage: 500 MG CVS GLUCOSAMINE, 400MG CHONDROITIN UNK
     Route: 048
  17. METHYLPHENIDATE HCL [Concomitant]
     Dosage: 10 MG, TID
     Route: 048
     Dates: start: 20101117
  18. ZITHROMAX [Concomitant]
     Dosage: 500 MG, UNK
     Route: 042
  19. VITAMIN D [Concomitant]
  20. DOCUSATE SODIUM [Concomitant]
     Dosage: 25 MG, BID
  21. COPAXONE [Suspect]
     Indication: MULTIPLE SCLEROSIS
     Dosage: 20 MG/ML, QD
     Route: 058
  22. ALBUTEROL [Concomitant]
     Dosage: 2 PUFFS EVERY 4 HRS AS NEEDED, Q4H
     Dates: start: 20081003
  23. ULOBETASOL [Concomitant]
     Dosage: 1 DF, TID
     Dates: start: 20061010
  24. PROPRANOLOL [Concomitant]
     Dosage: 1 DF, QD
     Route: 048
     Dates: start: 20100226
  25. POTASSIUM CHLORIDE [Concomitant]
  26. FUROSEMIDE [Concomitant]
     Dosage: 20 MG, BID
  27. BUPIVACAINE HCL [Concomitant]
     Indication: PAIN
     Route: 037
  28. SUCRALFATE [Concomitant]
     Dosage: 1 G, QID
  29. SILODOSIN [Concomitant]
     Indication: BLADDER DISORDER
  30. CLONIDINE [Concomitant]
     Indication: PAIN
     Dosage: 1 DF, Q4H
     Route: 048
  31. CYCLOBENZAPRINE [Concomitant]
     Indication: MUSCLE SPASMS
     Dosage: 1 DF, Q8H
     Route: 048
     Dates: start: 20100621
  32. ATIVAN [Concomitant]
     Indication: ANXIETY
     Dosage: 1 DF, Q6H
     Route: 048
     Dates: start: 20050630
  33. PRILOSEC [Concomitant]
     Dosage: 1 DF, QD
     Route: 048
     Dates: start: 20100125
  34. SODIUM CHLORIDE [Concomitant]
     Dosage: 1 L, UNK
  35. IPRATROPIUM BROMIDE [Concomitant]
  36. OSTEO BI-FLEX [Concomitant]
     Dosage: 2 DF, QD
     Route: 048
  37. LISINOPRIL [Concomitant]
     Dosage: 2.5 MG, QD
     Route: 048
  38. WARFARIN SODIUM [Concomitant]
  39. CIALIS [Concomitant]
     Indication: ERECTILE DYSFUNCTION
  40. COPAXONE [Suspect]
     Dosage: 20 MG/ML, QD
     Route: 058
     Dates: start: 20120127
  41. TESTOSTERONE [Concomitant]
     Dosage: 1 ML, QW2
     Route: 030
     Dates: start: 20090106
  42. XOPENEX [Concomitant]
     Dosage: 1.25 MG/ 3ML NEBULIZATION SOLUTION
     Dates: start: 20120306
  43. PROZAC [Concomitant]
     Indication: DEPRESSION
     Dosage: 40 MG, BID
     Route: 048
     Dates: start: 20100924
  44. HALOBETASOL PROPIONATE [Concomitant]
  45. CEFTRIAXONE [Concomitant]
     Dosage: 1 G, UNK
     Route: 042

REACTIONS (90)
  - CARDIAC FAILURE CONGESTIVE [None]
  - ANGIOPATHY [None]
  - ANAEMIA [None]
  - VOMITING [None]
  - JOINT SWELLING [None]
  - ARTHRALGIA [None]
  - AORTIC ANEURYSM [None]
  - BLOOD CHLORIDE DECREASED [None]
  - BASOPHIL COUNT INCREASED [None]
  - HAEMATOCRIT DECREASED [None]
  - EXCORIATION [None]
  - ELECTROCARDIOGRAM ST-T CHANGE [None]
  - DIZZINESS [None]
  - BLOOD PRESSURE INCREASED [None]
  - ACUTE RESPIRATORY DISTRESS SYNDROME [None]
  - DEEP VEIN THROMBOSIS [None]
  - PULMONARY EMBOLISM [None]
  - TACHYCARDIA [None]
  - CARBON DIOXIDE ABNORMAL [None]
  - DYSPNOEA [None]
  - INCREASED UPPER AIRWAY SECRETION [None]
  - RHONCHI [None]
  - EJECTION FRACTION DECREASED [None]
  - HEPATIC STEATOSIS [None]
  - NOCTURIA [None]
  - BLOOD PH INCREASED [None]
  - RED BLOOD CELL COUNT DECREASED [None]
  - OEDEMA PERIPHERAL [None]
  - HAEMATURIA [None]
  - COGNITIVE DISORDER [None]
  - HYPOAESTHESIA [None]
  - PALATAL DISORDER [None]
  - CHRONIC OBSTRUCTIVE PULMONARY DISEASE [None]
  - SEPSIS [None]
  - OXYGEN SATURATION DECREASED [None]
  - COUGH [None]
  - TRANSIENT ISCHAEMIC ATTACK [None]
  - TENDERNESS [None]
  - RED CELL DISTRIBUTION WIDTH INCREASED [None]
  - MYELOCYTE COUNT INCREASED [None]
  - BLOOD CALCIUM DECREASED [None]
  - ACTIVATED PARTIAL THROMBOPLASTIN TIME PROLONGED [None]
  - EYES SUNKEN [None]
  - HAEMORRHAGE [None]
  - HAEMOGLOBIN DECREASED [None]
  - HAEMOPTYSIS [None]
  - FLUID RETENTION [None]
  - BRONCHITIS [None]
  - WHEEZING [None]
  - MUSCULOSKELETAL CHEST PAIN [None]
  - FALL [None]
  - LOSS OF CONSCIOUSNESS [None]
  - WOUND [None]
  - CONSTIPATION [None]
  - MUSCULAR WEAKNESS [None]
  - CONFUSIONAL STATE [None]
  - VISION BLURRED [None]
  - DRUG INEFFECTIVE [None]
  - ORAL CANDIDIASIS [None]
  - BODY TEMPERATURE INCREASED [None]
  - LUNG INFILTRATION [None]
  - X-RAY ABNORMAL [None]
  - MULTIPLE SCLEROSIS [None]
  - ANION GAP DECREASED [None]
  - BLOOD UREA INCREASED [None]
  - CARDIAC FUNCTION TEST ABNORMAL [None]
  - BLOOD PRESSURE DECREASED [None]
  - ATELECTASIS [None]
  - VISUAL ACUITY REDUCED [None]
  - FATIGUE [None]
  - GAIT DISTURBANCE [None]
  - ACUTE RESPIRATORY FAILURE [None]
  - CARDIOMYOPATHY [None]
  - CARDIOMEGALY [None]
  - BLOOD GLUCOSE INCREASED [None]
  - MALAISE [None]
  - BALANCE DISORDER [None]
  - MUSCLE SPASMS [None]
  - ASTHENIA [None]
  - ORAL DISORDER [None]
  - INAPPROPRIATE SCHEDULE OF DRUG ADMINISTRATION [None]
  - PNEUMONIA ASPIRATION [None]
  - TRICUSPID VALVE INCOMPETENCE [None]
  - NAUSEA [None]
  - OSTEOARTHRITIS [None]
  - PULMONARY HYPERTENSION [None]
  - BACK PAIN [None]
  - DYSPHAGIA [None]
  - APHASIA [None]
  - LYMPHOCYTE COUNT DECREASED [None]
